FAERS Safety Report 4383555-5 (Version None)
Quarter: 2004Q2

REPORT INFORMATION
  Report Type: 
  Country: None (occurrence: None)
  Receive Date: 20040602
  Receipt Date: 20031001
  Transmission Date: 20050107
  Serious: Yes (Other)
  Sender: FDA-Public Use
  Company Number: US-JNJFOC-20040204897

PATIENT
  Age: 69 Year
  Sex: Female
  Weight: 99.7913 kg

DRUGS (3)
  1. PROPULSID [Suspect]
     Indication: DYSPEPSIA
     Dosage: 1 DOSE(S), 4 IN 1 DAY
     Dates: start: 19970101
  2. ADALAT [Concomitant]
  3. LANOXIN [Concomitant]

REACTIONS (6)
  - AUTONOMIC NEUROPATHY [None]
  - CARDIAC DISORDER [None]
  - CHEST PAIN [None]
  - CHOKING [None]
  - ELECTROCARDIOGRAM QT CORRECTED INTERVAL PROLONGED [None]
  - VAGUS NERVE DISORDER [None]
